FAERS Safety Report 23895882 (Version 3)
Quarter: 2024Q3

REPORT INFORMATION
  Report Type: Spontaneous
  Country: US (occurrence: US)
  Receive Date: 20240524
  Receipt Date: 20240930
  Transmission Date: 20241017
  Serious: No
  Sender: PFIZER
  Company Number: US-PFIZER INC-202400171725

PATIENT
  Age: 6 Year
  Sex: Male

DRUGS (3)
  1. GENOTROPIN [Suspect]
     Active Substance: SOMATROPIN
     Indication: Premature baby
     Dosage: NIGHTLY AT BEDTIME, ADMINISTER ON HIS THIGH
  2. HYDROCORTISONE [Concomitant]
     Active Substance: HYDROCORTISONE\HYDROCORTISONE ACETATE
     Indication: Immune system disorder
     Dosage: HALF TABLET IN THE MORNING AND HALF TABLET AT NIGHT, THEREFORE 1 TABLET A DAY
     Route: 048
  3. LEVOTHYROXINE [Concomitant]
     Active Substance: LEVOTHYROXINE\LEVOTHYROXINE SODIUM
     Dosage: 88MCG HALF A TABLET A DAY
     Route: 048

REACTIONS (4)
  - Drug dose omission by device [Unknown]
  - Accidental overdose [Unknown]
  - Device physical property issue [Unknown]
  - Off label use [Unknown]

NARRATIVE: CASE EVENT DATE: 20240101
